FAERS Safety Report 25440139 (Version 2)
Quarter: 2025Q2

REPORT INFORMATION
  Report Type: Spontaneous
  Country: CN (occurrence: CN)
  Receive Date: 20250616
  Receipt Date: 20250620
  Transmission Date: 20250716
  Serious: Yes (Life-Threatening, Hospitalization, Other)
  Sender: PFIZER
  Company Number: CN-PFIZER INC-PV202500069202

PATIENT
  Age: 46 Year
  Sex: Male
  Weight: 87 kg

DRUGS (15)
  1. IRINOTECAN HYDROCHLORIDE [Suspect]
     Active Substance: IRINOTECAN HYDROCHLORIDE
     Indication: Rectal cancer
     Dates: start: 2024, end: 20240705
  2. IRINOTECAN HYDROCHLORIDE [Suspect]
     Active Substance: IRINOTECAN HYDROCHLORIDE
     Indication: Metastases to lung
  3. IRINOTECAN HYDROCHLORIDE [Suspect]
     Active Substance: IRINOTECAN HYDROCHLORIDE
     Indication: Metastases to liver
  4. OXALIPLATIN [Suspect]
     Active Substance: OXALIPLATIN
     Indication: Rectal cancer
     Dates: start: 2024, end: 20240705
  5. OXALIPLATIN [Suspect]
     Active Substance: OXALIPLATIN
     Indication: Metastases to lung
  6. OXALIPLATIN [Suspect]
     Active Substance: OXALIPLATIN
     Indication: Metastases to liver
  7. LEUCOVORIN [Suspect]
     Active Substance: LEUCOVORIN\LEUCOVORIN CALCIUM
     Indication: Rectal cancer
     Dates: start: 2024, end: 20240705
  8. LEUCOVORIN [Suspect]
     Active Substance: LEUCOVORIN\LEUCOVORIN CALCIUM
     Indication: Metastases to lung
  9. LEUCOVORIN [Suspect]
     Active Substance: LEUCOVORIN\LEUCOVORIN CALCIUM
     Indication: Metastases to liver
  10. FLUOROURACIL [Suspect]
     Active Substance: FLUOROURACIL
     Indication: Rectal cancer
     Dates: start: 2024, end: 20240705
  11. FLUOROURACIL [Suspect]
     Active Substance: FLUOROURACIL
     Indication: Metastases to lung
  12. FLUOROURACIL [Suspect]
     Active Substance: FLUOROURACIL
     Indication: Metastases to liver
  13. BEVACIZUMAB [Suspect]
     Active Substance: BEVACIZUMAB
     Indication: Rectal cancer
     Dates: start: 2024, end: 20240705
  14. BEVACIZUMAB [Suspect]
     Active Substance: BEVACIZUMAB
     Indication: Metastases to lung
  15. BEVACIZUMAB [Suspect]
     Active Substance: BEVACIZUMAB
     Indication: Metastases to liver

REACTIONS (2)
  - Febrile neutropenia [Recovered/Resolved]
  - Hepatitis E [Recovered/Resolved]

NARRATIVE: CASE EVENT DATE: 20240701
